FAERS Safety Report 18797634 (Version 1)
Quarter: 2021Q1

REPORT INFORMATION
  Report Type: Spontaneous
  Country: DE (occurrence: DE)
  Receive Date: 20210127
  Receipt Date: 20210127
  Transmission Date: 20210419
  Serious: Yes (Hospitalization, Congenital Anomaly, Other)
  Sender: FDA-Public Use
  Company Number: DE-AUROBINDO-AUR-APL-2021-002751

PATIENT
  Age: 1 Day
  Sex: Female
  Weight: 1.23 kg

DRUGS (4)
  1. VIVINOX SLEEP [Concomitant]
     Active Substance: DIPHENHYDRAMINE HYDROCHLORIDE
     Indication: SLEEP DISORDER
     Dosage: 50 MILLIGRAM, ONCE A DAY
     Route: 064
  2. MIRTAZAPINE. [Suspect]
     Active Substance: MIRTAZAPINE
     Indication: SLEEP DISORDER
     Dosage: 15 (MG/D)/ 7.5?15 MG DAILY
     Route: 064
     Dates: start: 20190920, end: 20200205
  3. INSULIN [Concomitant]
     Active Substance: INSULIN NOS
     Indication: TYPE 2 DIABETES MELLITUS
     Dosage: UNK
     Route: 064
     Dates: start: 20190917, end: 20200205
  4. UTROGEST [Concomitant]
     Active Substance: PROGESTERONE
     Indication: CERVICAL INCOMPETENCE
     Dosage: 600 MILLIGRAM, ONCE A DAY (600 [MG/D ] 3 SEPARATED DOSES)
     Route: 064

REACTIONS (4)
  - Foetal exposure during pregnancy [Unknown]
  - Talipes [Not Recovered/Not Resolved]
  - Premature baby [Recovered/Resolved]
  - Heart disease congenital [Unknown]

NARRATIVE: CASE EVENT DATE: 20200205
